FAERS Safety Report 4939732-5 (Version None)
Quarter: 2006Q1

REPORT INFORMATION
  Report Type: 
  Country: None (occurrence: None)
  Receive Date: 20060310
  Receipt Date: 20050718
  Transmission Date: 20060701
  Serious: Yes (Hospitalization, Disabling)
  Sender: FDA-Public Use
  Company Number: US-MERCK-0507USA02322

PATIENT
  Age: 45 Year
  Sex: Male
  Weight: 123 kg

DRUGS (1)
  1. VIOXX [Suspect]
     Indication: BACK PAIN
     Route: 048
     Dates: start: 20010801, end: 20040101

REACTIONS (7)
  - ACUTE MYOCARDIAL INFARCTION [None]
  - ANXIETY [None]
  - CHEST PAIN [None]
  - CONTUSION [None]
  - DEPRESSION [None]
  - PNEUMONIA [None]
  - ROAD TRAFFIC ACCIDENT [None]
